FAERS Safety Report 12552541 (Version 1)
Quarter: 2016Q3

REPORT INFORMATION
  Report Type: Spontaneous
  Country: US (occurrence: US)
  Receive Date: 20160713
  Receipt Date: 20160713
  Transmission Date: 20161109
  Serious: No
  Sender: FDA-Public Use
  Company Number: US-PFIZER INC-2016305993

PATIENT
  Age: 75 Year
  Sex: Female

DRUGS (2)
  1. LETROZOLE. [Suspect]
     Active Substance: LETROZOLE
     Dosage: UNK, DAILY
  2. IBRANCE [Suspect]
     Active Substance: PALBOCICLIB
     Dosage: 125 MG CAPSULES, FOR 3 WEEKS, START AGAIN ON THE 8TH DAY AFTER STOPPING

REACTIONS (2)
  - Somnolence [Unknown]
  - Fatigue [Unknown]
